FAERS Safety Report 24788414 (Version 1)
Quarter: 2024Q4

REPORT INFORMATION
  Report Type: Spontaneous
  Country: FR (occurrence: FR)
  Receive Date: 20241230
  Receipt Date: 20241230
  Transmission Date: 20250115
  Serious: Yes (Hospitalization, Other)
  Sender: AUROBINDO
  Company Number: FR-AFSSAPS-PB2024001452

PATIENT
  Age: 51 Year
  Sex: Male
  Weight: 91 kg

DRUGS (6)
  1. VALGANCICLOVIR [Suspect]
     Active Substance: VALGANCICLOVIR
     Indication: Antiviral prophylaxis
     Dosage: 450 MILLIGRAM
     Route: 048
     Dates: start: 202407, end: 20241204
  2. BACTRIM [Suspect]
     Active Substance: SULFAMETHOXAZOLE\TRIMETHOPRIM
     Indication: Antifungal prophylaxis
     Dosage: 1 DOSAGE FORM
     Route: 048
     Dates: start: 202407, end: 20241204
  3. NULOJIX [Suspect]
     Active Substance: BELATACEPT
     Indication: Prophylaxis against transplant rejection
     Dosage: 800 MILLIGRAM
     Route: 042
     Dates: start: 20241009, end: 20241009
  4. NULOJIX [Suspect]
     Active Substance: BELATACEPT
     Dosage: 800 MILLIGRAM
     Route: 042
     Dates: start: 20241023, end: 20241023
  5. NULOJIX [Suspect]
     Active Substance: BELATACEPT
     Dosage: 800 MILLIGRAM
     Route: 042
     Dates: start: 20241106, end: 20241106
  6. NULOJIX [Suspect]
     Active Substance: BELATACEPT
     Dosage: 800 MILLIGRAM
     Route: 042
     Dates: start: 20241121, end: 20241121

REACTIONS (2)
  - Agranulocytosis [Recovering/Resolving]
  - Pneumonia respiratory syncytial viral [Recovered/Resolved]

NARRATIVE: CASE EVENT DATE: 20241130
